FAERS Safety Report 19303469 (Version 1)
Quarter: 2021Q2

REPORT INFORMATION
  Report Type: Spontaneous
  Country: NL (occurrence: NL)
  Receive Date: 20210525
  Receipt Date: 20210525
  Transmission Date: 20210717
  Serious: Yes (Disabling)
  Sender: FDA-Public Use
  Company Number: NL-MYLANLABS-2021M1029997

PATIENT
  Sex: Male
  Weight: 82 kg

DRUGS (6)
  1. TELMISARTAN. [Suspect]
     Active Substance: TELMISARTAN
     Indication: CEREBROVASCULAR ACCIDENT
     Dosage: 1 X PER DAY
     Dates: start: 2009
  2. CARBASALATE CALCIUM [Concomitant]
     Active Substance: CARBASPIRIN CALCIUM
     Dosage: UNK
  3. BISOPROLOL [Concomitant]
     Active Substance: BISOPROLOL
     Dosage: 2.5 MILLIGRAM
  4. TELMISARTAN. [Suspect]
     Active Substance: TELMISARTAN
     Indication: MYOCARDIAL INFARCTION
  5. NIFEDIPINE. [Suspect]
     Active Substance: NIFEDIPINE
     Indication: CEREBROVASCULAR ACCIDENT
     Dosage: 60 MILLIGRAM, QD
     Dates: start: 2009
  6. NIFEDIPINE. [Suspect]
     Active Substance: NIFEDIPINE
     Indication: MYOCARDIAL INFARCTION

REACTIONS (5)
  - Therapeutic response unexpected [Unknown]
  - Gout [Unknown]
  - Haematoma [Unknown]
  - Pruritus [Not Recovered/Not Resolved]
  - Rash [Not Recovered/Not Resolved]
